FAERS Safety Report 8254782-1 (Version None)
Quarter: 2012Q2

REPORT INFORMATION
  Report Type: 
  Country: None (occurrence: None)
  Receive Date: 20120403
  Receipt Date: 20120327
  Transmission Date: 20120825
  Serious: Yes (Hospitalization)
  Sender: FDA-Public Use
  Company Number: PHEH2012US006881

PATIENT
  Sex: Female

DRUGS (3)
  1. FORADIL [Suspect]
     Indication: ASTHMA
     Dosage: 12 UG, BID
     Dates: start: 20120316, end: 20120321
  2. ALBUTEROL [Concomitant]
  3. PAXIL [Concomitant]

REACTIONS (5)
  - SOMNOLENCE [None]
  - HALLUCINATION [None]
  - MUSCULAR WEAKNESS [None]
  - PANIC ATTACK [None]
  - MOOD SWINGS [None]
